FAERS Safety Report 14562221 (Version 1)
Quarter: 2018Q1

REPORT INFORMATION
  Report Type: Spontaneous
  Country: US (occurrence: US)
  Receive Date: 20180222
  Receipt Date: 20180222
  Transmission Date: 20180509
  Serious: Yes (Hospitalization)
  Sender: FDA-Public Use
  Company Number: US-SA-2018SA043312

PATIENT
  Age: 45 Year
  Sex: Female

DRUGS (4)
  1. DIPHENHYDRAMINE. [Suspect]
     Active Substance: DIPHENHYDRAMINE
     Indication: HEADACHE
     Route: 065
  2. METOCLOPRAMIDE. [Concomitant]
     Active Substance: METOCLOPRAMIDE
     Indication: HEADACHE
     Route: 065
  3. METOCLOPRAMIDE. [Concomitant]
     Active Substance: METOCLOPRAMIDE
     Indication: NAUSEA
     Route: 065
  4. DIPHENHYDRAMINE. [Suspect]
     Active Substance: DIPHENHYDRAMINE
     Indication: NAUSEA
     Route: 065

REACTIONS (11)
  - Tachycardia [Unknown]
  - Electrocardiogram PR shortened [Unknown]
  - Blood catecholamines increased [Unknown]
  - Acute pulmonary oedema [Unknown]
  - Adrenal mass [Unknown]
  - Hypoxia [Unknown]
  - Hypertension [Unknown]
  - Respiratory distress [Unknown]
  - Sinus bradycardia [Unknown]
  - Adrenocortical insufficiency acute [Unknown]
  - Phaeochromocytoma [Unknown]
